FAERS Safety Report 24154599 (Version 1)
Quarter: 2024Q3

REPORT INFORMATION
  Report Type: Spontaneous
  Country: JP (occurrence: JP)
  Receive Date: 20240731
  Receipt Date: 20240731
  Transmission Date: 20241017
  Serious: Yes (Hospitalization, Other)
  Sender: CHEPLAPHARM
  Company Number: JP-CHUGAI-2024024186

PATIENT
  Age: 66 Year
  Sex: Female
  Weight: 56.099 kg

DRUGS (12)
  1. VALGANCICLOVIR [Suspect]
     Active Substance: VALGANCICLOVIR
     Indication: Product used for unknown indication
  2. GAZYVA [Suspect]
     Active Substance: OBINUTUZUMAB
     Indication: Follicular lymphoma
     Dosage: ROA: IV DRIP. 1000 MILLIGRAM, QD?DAILY DOSE: 1000 MILLIGRAM
     Route: 042
     Dates: start: 20210915, end: 20210915
  3. GAZYVA [Suspect]
     Active Substance: OBINUTUZUMAB
     Indication: Follicular lymphoma
     Dosage: INTRAVENOUS DRIP. 1000 MILLIGRAM, QD?DAILY DOSE: 1000 MILLIGRAM
     Route: 042
     Dates: start: 20210922, end: 20210922
  4. GAZYVA [Suspect]
     Active Substance: OBINUTUZUMAB
     Indication: Follicular lymphoma
     Dosage: INTRAVENOUS DRIP. 1000 MILLIGRAM, QD?DAILY DOSE: 1000 MILLIGRAM
     Route: 042
     Dates: start: 20210929, end: 20210929
  5. GAZYVA [Suspect]
     Active Substance: OBINUTUZUMAB
     Indication: Follicular lymphoma
     Dosage: INTRAVENOUS DRIP. 1000 MILLIGRAM, QD?DAILY DOSE: 1000 MILLIGRAM
     Route: 042
     Dates: start: 20211013, end: 20211013
  6. GAZYVA [Suspect]
     Active Substance: OBINUTUZUMAB
     Indication: Follicular lymphoma
     Dosage: INTRAVENOUS DRIP. 1000 MILLIGRAM, QD?DAILY DOSE: 1000 MILLIGRAM
     Route: 042
     Dates: start: 20211110, end: 20211110
  7. GAZYVA [Suspect]
     Active Substance: OBINUTUZUMAB
     Indication: Follicular lymphoma
     Dosage: INTRAVENOUS DRIP. 1000 MILLIGRAM, QD?DAILY DOSE: 1000 MILLIGRAM
     Route: 042
     Dates: start: 20211208, end: 20211208
  8. GAZYVA [Suspect]
     Active Substance: OBINUTUZUMAB
     Indication: Follicular lymphoma
     Dosage: INTRAVENOUS DRIP. 1000 MILLIGRAM, QD?DAILY DOSE: 1000 MILLIGRAM
     Route: 042
     Dates: start: 20220112, end: 20220112
  9. GAZYVA [Suspect]
     Active Substance: OBINUTUZUMAB
     Indication: Follicular lymphoma
     Dosage: INTRAVENOUS DRIP. 1000 MILLIGRAM, QD?DAILY DOSE: 1000 MILLIGRAM
     Route: 042
     Dates: start: 20220406, end: 20220406
  10. GAZYVA [Suspect]
     Active Substance: OBINUTUZUMAB
     Indication: Follicular lymphoma
     Dosage: INTRAVENOUS DRIP. 1000 MILLIGRAM, QD?DAILY DOSE: 1000 MILLIGRAM
     Route: 042
     Dates: start: 20220609, end: 20220609
  11. GAZYVA [Suspect]
     Active Substance: OBINUTUZUMAB
     Indication: Follicular lymphoma
     Dosage: INTRAVENOUS DRIP. 1000 MILLIGRAM, QD?DAILY DOSE: 1000 MILLIGRAM
     Route: 042
     Dates: start: 20220804, end: 20220804
  12. BENDAMUSTINE HYDROCHLORIDE [Concomitant]
     Active Substance: BENDAMUSTINE HYDROCHLORIDE
     Indication: Follicular lymphoma
     Dosage: INTRAVENOUS DRIP
     Route: 042
     Dates: start: 20210915, end: 20220114

REACTIONS (6)
  - Febrile neutropenia [Recovering/Resolving]
  - Pneumonia bacterial [Unknown]
  - COVID-19 [Recovering/Resolving]
  - COVID-19 pneumonia [Recovering/Resolving]
  - Myelosuppression [Unknown]
  - COVID-19 [Unknown]

NARRATIVE: CASE EVENT DATE: 20220823
